FAERS Safety Report 5195430-7 (Version None)
Quarter: 2006Q4

REPORT INFORMATION
  Report Type: 
  Country: None (occurrence: None)
  Receive Date: 20061230
  Receipt Date: 20060405
  Transmission Date: 20070319
  Serious: Yes (Other)
  Sender: FDA-Public Use
  Company Number: US-NOVOPROD-252258

PATIENT
  Sex: Female
  Weight: 70.748 kg

DRUGS (11)
  1. ACTIVELLA [Suspect]
     Indication: MENOPAUSAL SYMPTOMS
     Dosage: UNK, UNK
     Dates: start: 20000101, end: 20010101
  2. PREMARIN [Suspect]
     Indication: MENOPAUSAL SYMPTOMS
     Dosage: .625 MG, UNK
     Dates: start: 19910101, end: 19940101
  3. OGEN [Suspect]
     Indication: MENOPAUSAL SYMPTOMS
     Dosage: 1.25 MG, UNK
     Dates: start: 19910101, end: 19910101
  4. PROVERA [Suspect]
     Indication: MENOPAUSAL SYMPTOMS
     Dosage: 2.5 - 10 MG, UNK
     Dates: start: 19910101, end: 19990101
  5. ESTRATEST [Suspect]
     Indication: MENOPAUSAL SYMPTOMS
     Dosage: UNKNOWN
     Dates: start: 19910101, end: 19920101
  6. ESTRACE [Suspect]
     Indication: MENOPAUSAL SYMPTOMS
     Dosage: 1 MG, UNK
     Dates: start: 19920101, end: 19970101
  7. MEDROXYPROGESTERONE [Suspect]
     Indication: MENOPAUSAL SYMPTOMS
     Dosage: 10 MG, UNK
     Dates: start: 19930101, end: 19950101
  8. MENEST [Suspect]
     Indication: MENOPAUSAL SYMPTOMS
     Dosage: 3 MG, UNK
     Dates: start: 19990101, end: 20000101
  9. PREMPRO [Suspect]
     Indication: MENOPAUSAL SYMPTOMS
     Dosage: UNKNOWN
  10. CLIMARA [Suspect]
     Indication: MENOPAUSAL SYMPTOMS
     Dosage: 5 MG, UNK
     Dates: start: 19970101, end: 19980101
  11. ESTRATAB [Suspect]
     Indication: MENOPAUSAL SYMPTOMS
     Dosage: 3 MG, UNK
     Dates: start: 19980101, end: 19990101

REACTIONS (4)
  - BREAST CANCER [None]
  - BREAST CANCER FEMALE [None]
  - OESTROGEN RECEPTOR ASSAY POSITIVE [None]
  - PROGESTERONE RECEPTOR ASSAY POSITIVE [None]
